FAERS Safety Report 7570664-2 (Version None)
Quarter: 2011Q2

REPORT INFORMATION
  Report Type: 
  Country: None (occurrence: None)
  Receive Date: 20110624
  Receipt Date: 20110428
  Transmission Date: 20111010
  Serious: No
  Sender: FDA-Public Use
  Company Number: US-ALLERGAN-1105909US

PATIENT
  Sex: Female

DRUGS (3)
  1. MASCARA [Concomitant]
  2. EYELINER [Concomitant]
  3. LATISSE [Suspect]
     Indication: GROWTH OF EYELASHES
     Dosage: UNK
     Route: 065

REACTIONS (1)
  - MADAROSIS [None]
